FAERS Safety Report 17945873 (Version 1)
Quarter: 2020Q2

REPORT INFORMATION
  Report Type: Spontaneous
  Country: JP (occurrence: JP)
  Receive Date: 20200625
  Receipt Date: 20200625
  Transmission Date: 20200714
  Serious: Yes (Other)
  Sender: FDA-Public Use
  Company Number: JP-JNJFOC-20200634202

PATIENT
  Age: 63 Year
  Sex: Male

DRUGS (5)
  1. REMICADE [Suspect]
     Active Substance: INFLIXIMAB
     Indication: RHEUMATOID ARTHRITIS
     Dosage: 3 MILLIGRAM/KILOGRAM, QD
     Route: 042
     Dates: start: 200609
  2. REMICADE [Suspect]
     Active Substance: INFLIXIMAB
     Dosage: 6 MILLIGRAM/KILOGRAM, QD
     Route: 042
     Dates: start: 200907
  3. METHOTREXATE. [Suspect]
     Active Substance: METHOTREXATE
     Indication: RHEUMATOID ARTHRITIS
     Dosage: 6 MILLIGRAM, 1/WEEK
     Route: 048
     Dates: start: 2005
  4. REMICADE [Suspect]
     Active Substance: INFLIXIMAB
     Dosage: 8 MILLIGRAM/KILOGRAM, QD
     Route: 042
     Dates: start: 20200501, end: 20200501
  5. REMICADE [Suspect]
     Active Substance: INFLIXIMAB
     Dosage: 8 MILLIGRAM/KILOGRAM, QD
     Route: 042
     Dates: start: 20190201

REACTIONS (1)
  - Lymphoproliferative disorder [Unknown]

NARRATIVE: CASE EVENT DATE: 20200610
